FAERS Safety Report 9127547 (Version 1)
Quarter: 2013Q1

REPORT INFORMATION
  Report Type: Spontaneous
  Country: US (occurrence: US)
  Receive Date: 20130228
  Receipt Date: 20130228
  Transmission Date: 20140127
  Serious: Yes (Other)
  Sender: FDA-Public Use
  Company Number: US-GLAXOSMITHKLINE-A0983226A

PATIENT
  Age: 61 Year
  Sex: Female

DRUGS (7)
  1. LAMICTAL [Suspect]
     Indication: BIPOLAR DISORDER
     Dosage: 200MG TWICE PER DAY
     Route: 048
  2. CITALOPRAM [Concomitant]
  3. BUSPIRONE [Concomitant]
  4. 6-MERCAPTOPURINE [Concomitant]
  5. METHADONE [Concomitant]
  6. IMITREX [Concomitant]
  7. MAXALT [Concomitant]

REACTIONS (1)
  - Anaemia macrocytic [Not Recovered/Not Resolved]
